FAERS Safety Report 5125454-7 (Version None)
Quarter: 2006Q3

REPORT INFORMATION
  Report Type: 
  Country: None (occurrence: None)
  Receive Date: 20060822
  Receipt Date: 20060724
  Transmission Date: 20061208
  Serious: No
  Sender: FDA-Public Use
  Company Number: PHEH2006US09480

PATIENT
  Sex: Male

DRUGS (3)
  1. ENABLEX [Suspect]
     Indication: HYPERTONIC BLADDER
     Dosage: 15 MG, QD
     Dates: start: 20060714, end: 20060723
  2. LOTREL [Concomitant]
  3. TENORMIN [Concomitant]

REACTIONS (3)
  - ABDOMINAL PAIN [None]
  - CONSTIPATION [None]
  - DRY MOUTH [None]
